FAERS Safety Report 12507795 (Version 1)
Quarter: 2016Q2

REPORT INFORMATION
  Report Type: Spontaneous
  Country: US (occurrence: None)
  Receive Date: 20160628
  Receipt Date: 20160628
  Transmission Date: 20160815
  Serious: No
  Sender: FDA-Public Use
  Company Number: None

PATIENT
  Age: 65 Year
  Sex: Female

DRUGS (8)
  1. ARMOUR THYROID [Concomitant]
     Active Substance: THYROID, PORCINE
  2. TRAVATAN [Concomitant]
     Active Substance: TRAVOPROST
  3. IBRANCE [Suspect]
     Active Substance: PALBOCICLIB
     Indication: BREAST CANCER
     Route: 048
     Dates: start: 20160506
  4. MILK THISTLE [Concomitant]
     Active Substance: MILK THISTLE
  5. ZIOPTAN [Concomitant]
     Active Substance: TAFLUPROST
  6. LEXAPRO [Concomitant]
     Active Substance: ESCITALOPRAM OXALATE
  7. ZOLOFT [Concomitant]
     Active Substance: SERTRALINE HYDROCHLORIDE
  8. ZOFRAN [Concomitant]
     Active Substance: ONDANSETRON HYDROCHLORIDE

REACTIONS (4)
  - Headache [None]
  - Nausea [None]
  - Fatigue [None]
  - Dyspepsia [None]

NARRATIVE: CASE EVENT DATE: 201606
